FAERS Safety Report 22028458 (Version 1)
Quarter: 2023Q1

REPORT INFORMATION
  Report Type: Spontaneous
  Country: US (occurrence: None)
  Receive Date: 20230223
  Receipt Date: 20230223
  Transmission Date: 20230418
  Serious: No
  Sender: FDA-Public Use
  Company Number: US-ROCHE-3203695

PATIENT
  Sex: Female

DRUGS (2)
  1. NUTROPIN [Suspect]
     Active Substance: SOMATROPIN
     Indication: Mosaicism
     Route: 058
     Dates: start: 20220907
  2. NUTROPIN [Suspect]
     Active Substance: SOMATROPIN

REACTIONS (2)
  - Ear infection [Unknown]
  - Off label use [Unknown]
